FAERS Safety Report 8967963 (Version 1)
Quarter: 2012Q4

REPORT INFORMATION
  Report Type: Spontaneous
  Country: NL (occurrence: None)
  Receive Date: 20121210
  Receipt Date: 20121210
  Transmission Date: 20130627
  Serious: Yes (Death, Hospitalization)
  Sender: FDA-Public Use
  Company Number: PRED20120072

PATIENT
  Age: 75 Year
  Sex: Female

DRUGS (6)
  1. PREDNISONE [Suspect]
     Indication: AUTOIMMUNE HEPATITIS
     Route: 048
  2. AREDIA [Suspect]
     Route: 042
     Dates: start: 2009
  3. ZOMETA [Suspect]
  4. AZATHIOPRINE [Suspect]
  5. VITAMIN D (ERGOCALCIFEROL) [Concomitant]
  6. CALCIUM (CALCIUM) [Concomitant]

REACTIONS (7)
  - Autoimmune hepatitis [None]
  - Osteonecrosis of jaw [None]
  - Malnutrition [None]
  - Pseudomonas test positive [None]
  - Candidiasis [None]
  - Respiratory failure [None]
  - Candida pneumonia [None]
